FAERS Safety Report 6527927-9 (Version None)
Quarter: 2010Q1

REPORT INFORMATION
  Report Type: 
  Country: None (occurrence: None)
  Receive Date: 20100105
  Receipt Date: 20100105
  Transmission Date: 20100710
  Serious: No
  Sender: FDA-Public Use
  Company Number: None

PATIENT
  Age: 87 Year
  Sex: Male

DRUGS (1)
  1. FUROSEMIDE INTENSOL [Suspect]
     Indication: OEDEMA PERIPHERAL
     Dosage: 80 MG BID PO
     Route: 048
     Dates: start: 20090824, end: 20090902

REACTIONS (3)
  - PETECHIAE [None]
  - STEVENS-JOHNSON SYNDROME [None]
  - THERMAL BURN [None]
